FAERS Safety Report 9122216 (Version 3)
Quarter: 2016Q1

REPORT INFORMATION
  Report Type: Spontaneous
  Country: GB (occurrence: GB)
  Receive Date: 20130227
  Receipt Date: 20160205
  Transmission Date: 20160526
  Serious: Yes (Other)
  Sender: FDA-Public Use
  Company Number: GB-BRISTOL-MYERS SQUIBB COMPANY-17396268

PATIENT
  Age: 58 Year
  Sex: Female

DRUGS (1)
  1. ABILIFY [Suspect]
     Active Substance: ARIPIPRAZOLE
     Indication: PSYCHOTIC DISORDER
     Dosage: DOSE WAS INCREASED TO 10MG/D
     Route: 048
     Dates: start: 2006

REACTIONS (4)
  - Off label use [Unknown]
  - Psychotic disorder [Not Recovered/Not Resolved]
  - Drug dose omission [Unknown]
  - Memory impairment [Not Recovered/Not Resolved]
